FAERS Safety Report 11803723 (Version 4)
Quarter: 2016Q1

REPORT INFORMATION
  Report Type: Spontaneous
  Country: US (occurrence: US)
  Receive Date: 20151204
  Receipt Date: 20160318
  Transmission Date: 20160525
  Serious: No
  Sender: FDA-Public Use
  Company Number: US-PFIZER INC-2015425006

PATIENT
  Age: 62 Year
  Sex: Female

DRUGS (24)
  1. MULTIVITAMINS WITH MINERALS /02370601/ [Concomitant]
     Dosage: ONE A DAY
  2. MAGNESIUM [Concomitant]
     Active Substance: MAGNESIUM
     Indication: BONE DISORDER
  3. ACETYLSALICYLIC ACID [Concomitant]
     Active Substance: ASPIRIN
     Indication: CARDIAC DISORDER
     Dosage: 81 MG, UNK
     Dates: start: 2012
  4. CYMBALTA [Concomitant]
     Active Substance: DULOXETINE HYDROCHLORIDE
     Dosage: 30 MG, DAILY
     Dates: start: 2012
  5. LIDODERM [Concomitant]
     Active Substance: LIDOCAINE
     Dosage: UNK UNK, CYCLIC (12 HR ON/ 12 HRS OFF)
     Dates: start: 2012
  6. LORATADINE. [Concomitant]
     Active Substance: LORATADINE
     Indication: SINUS CONGESTION
     Dosage: 10 MG, DAILY
     Dates: start: 2012
  7. ZOLEDRONIC ACID [Concomitant]
     Active Substance: ZOLEDRONIC ACID
     Indication: BONE DISORDER
     Dosage: 5 MG, (5MG OVER 100ML SHOT ONE A YEAR)
     Dates: start: 2013
  8. SUMATRIPTAN. [Concomitant]
     Active Substance: SUMATRIPTAN
     Indication: MIGRAINE
     Dosage: 100 MG, AS NEEDED (1 TABLET)
     Dates: start: 2013
  9. LIDODERM [Concomitant]
     Active Substance: LIDOCAINE
     Indication: PAIN
     Dosage: UNK (CAN USE 3 OF THEM UP TO 12 HOURS AND 12 HOURS OFF)
  10. CELECOXIB. [Suspect]
     Active Substance: CELECOXIB
     Dosage: 400 MG, 1X/DAY
     Dates: start: 2010
  11. NIFEDIPINE. [Concomitant]
     Active Substance: NIFEDIPINE
     Indication: RAYNAUD^S PHENOMENON
     Dosage: 10 MG, (1-3 DAILY)
  12. FLONASE [Concomitant]
     Active Substance: FLUTICASONE PROPIONATE
     Indication: SINUS DISORDER
     Dosage: 50 UG, TWO SPRAYS EACH NOSTRIL AT NIGHT
  13. NIFEDIPINE. [Concomitant]
     Active Substance: NIFEDIPINE
     Dosage: 10 MG, 2X/DAY
     Dates: start: 2011
  14. VITAMIN B12 [Concomitant]
     Active Substance: CYANOCOBALAMIN
     Dosage: 1500 UG, DAILY
     Dates: start: 2014
  15. HYDROCODONE/ACETAMINOPHEN [Concomitant]
     Active Substance: ACETAMINOPHEN\HYDROCODONE
     Indication: ARTHRITIS
     Dosage: 1 DF, DAILY (5/500MG)
     Dates: start: 2013
  16. HYDROCODONE/ACETAMINOPHEN [Concomitant]
     Active Substance: ACETAMINOPHEN\HYDROCODONE
     Indication: OSTEOARTHRITIS
  17. FLUTICASONE [Concomitant]
     Active Substance: FLUTICASONE\FLUTICASONE PROPIONATE
     Indication: SINUS DISORDER
     Dosage: UNK, 1X/DAY (2 SPRAYS NIGHTLY)
     Dates: start: 2013
  18. CELECOXIB. [Suspect]
     Active Substance: CELECOXIB
     Indication: OSTEOARTHRITIS
     Dosage: 200 MG, 2X/DAY
     Route: 048
     Dates: start: 20151117
  19. COLECALCIFEROL [Concomitant]
     Active Substance: CHOLECALCIFEROL
     Indication: BONE DISORDER
     Dosage: 3000 MG, DAILY
  20. MUCINEX DM [Concomitant]
     Active Substance: DEXTROMETHORPHAN HYDROBROMIDE\GUAIFENESIN
     Indication: NASAL DISORDER
     Dosage: DEXTROMETHORPHAN HYDROBROMIDE30MG, GUAIFENESIN600MG ,1-2  DAILY
  21. TOPIRAMATE. [Concomitant]
     Active Substance: TOPIRAMATE
     Indication: MIGRAINE
     Dosage: 25 MG, 3X/DAY
     Dates: start: 2012
  22. MAGNESIUM [Concomitant]
     Active Substance: MAGNESIUM
     Indication: MUSCLE DISORDER
     Dosage: 500 MG, DAILY
     Dates: start: 2014
  23. CALCIUM CARBONATE. [Concomitant]
     Active Substance: CALCIUM CARBONATE
     Indication: BONE DISORDER
     Dosage: 2 DF, DAILY
     Dates: start: 2011
  24. VITAMIN B12 [Concomitant]
     Active Substance: CYANOCOBALAMIN
     Dosage: 1000 MG, DAILY

REACTIONS (6)
  - Hypersomnia [Recovered/Resolved]
  - Dyspepsia [Recovered/Resolved]
  - Drug dispensing error [Recovered/Resolved]
  - Bedridden [Recovered/Resolved]
  - Laryngeal disorder [Recovered/Resolved]
  - Abdominal discomfort [Recovered/Resolved]

NARRATIVE: CASE EVENT DATE: 2015
